FAERS Safety Report 4910081-4 (Version None)
Quarter: 2006Q1

REPORT INFORMATION
  Report Type: 
  Country: None (occurrence: None)
  Receive Date: 20060209
  Receipt Date: 20060119
  Transmission Date: 20060701
  Serious: Yes (Hospitalization, Other)
  Sender: FDA-Public Use
  Company Number: US200511003339

PATIENT
  Age: 45 Year
  Sex: Male
  Weight: 267 kg

DRUGS (9)
  1. ZYPREXA [Suspect]
     Indication: DEPRESSION
     Dosage: 20 MG,
     Dates: start: 20030101
  2. LEXAPRO/USA/ (ESCITALOPRAM) [Concomitant]
  3. PREVACID [Concomitant]
  4. LOTREL [Concomitant]
  5. LORTAB [Concomitant]
  6. AVANDIA/UNK/ (ROSIGLITAZONE MALEATE) [Concomitant]
  7. ZOCOR [Concomitant]
  8. HYDROCHLOROTHIAZIDE [Concomitant]
  9. AMBIEN [Concomitant]

REACTIONS (16)
  - ALANINE AMINOTRANSFERASE INCREASED [None]
  - ANGINA UNSTABLE [None]
  - AORTIC ARTERIOSCLEROSIS [None]
  - ASPARTATE AMINOTRANSFERASE INCREASED [None]
  - BLOOD PRESSURE INCREASED [None]
  - CAROTID ARTERY STENOSIS [None]
  - CORONARY ARTERY DISEASE [None]
  - DIABETES MELLITUS NON-INSULIN-DEPENDENT [None]
  - HEMIPARESIS [None]
  - HEPATIC ENZYME INCREASED [None]
  - HYPERPHAGIA [None]
  - HYPOAESTHESIA [None]
  - ISCHAEMIC STROKE [None]
  - MITRAL VALVE INCOMPETENCE [None]
  - POLYURIA [None]
  - VISION BLURRED [None]
